FAERS Safety Report 5301854-7 (Version None)
Quarter: 2007Q2

REPORT INFORMATION
  Report Type: 
  Country: None (occurrence: None)
  Receive Date: 20070416
  Receipt Date: 20070416
  Transmission Date: 20071010
  Serious: No
  Sender: FDA-Public Use
  Company Number: None

PATIENT
  Age: 45 Year
  Sex: Female
  Weight: 70.3075 kg

DRUGS (2)
  1. ZOLOFT [Suspect]
     Indication: MENOPAUSAL SYMPTOMS
     Dosage: 1 PILL ONCE A DAY PO
     Route: 048
     Dates: start: 20070329, end: 20070412
  2. ZOLOFT [Suspect]
     Indication: MIGRAINE
     Dosage: 1 PILL ONCE A DAY PO
     Route: 048
     Dates: start: 20070329, end: 20070412

REACTIONS (8)
  - AGITATION [None]
  - ANXIETY [None]
  - ASTHENIA [None]
  - BREAST TENDERNESS [None]
  - DRUG INEFFECTIVE [None]
  - MENOPAUSAL SYMPTOMS [None]
  - MIGRAINE [None]
  - PHARMACEUTICAL PRODUCT COMPLAINT [None]
